FAERS Safety Report 10251401 (Version 2)
Quarter: 2014Q3

REPORT INFORMATION
  Report Type: Spontaneous
  Country: US (occurrence: US)
  Receive Date: 20140623
  Receipt Date: 20140715
  Transmission Date: 20150326
  Serious: Yes (Death)
  Sender: FDA-Public Use
  Company Number: US-ROCHE-1422506

PATIENT
  Age: 54 Year
  Sex: Female

DRUGS (16)
  1. AVASTIN [Suspect]
     Active Substance: BEVACIZUMAB
     Indication: LUNG NEOPLASM MALIGNANT
     Route: 042
     Dates: start: 20140206
  2. ACYCLOVIR. [Concomitant]
     Active Substance: ACYCLOVIR
     Dosage: DOSAGE REGIMEN  FOR 7 DAYS
     Route: 048
  3. METOCLOPRAMIDE HCL [Concomitant]
     Active Substance: METOCLOPRAMIDE HYDROCHLORIDE
     Dosage: 30 MINUTES BEFORE MEAL AT BEDTIME
     Route: 048
  4. SPIRIVA [Concomitant]
     Active Substance: TIOTROPIUM BROMIDE MONOHYDRATE
     Dosage: 1 CAPSULE EVERY DAY USING 2 INHALATION VIA HANDINHELAR.
     Route: 055
  5. DIFLUCAN [Concomitant]
     Active Substance: FLUCONAZOLE
     Route: 048
  6. LIDOCAINE HCL [Concomitant]
     Active Substance: LIDOCAINE HYDROCHLORIDE
     Dosage: 20 MG/ML.?TO BE TAKEN 5 SWISH AND SWALLOW BEFORE MEALS UPTO 4 TIMES DAILY
     Route: 048
  7. EXCEDRIN MIGRAINE [Concomitant]
     Active Substance: ACETAMINOPHEN\ASPIRIN\CAFFEINE
     Dosage: 250 MG - 65 MG EVERY DAY
     Route: 048
  8. ALIMTA [Concomitant]
     Active Substance: PEMETREXED DISODIUM
     Route: 065
     Dates: start: 201402
  9. FOLIC ACID. [Concomitant]
     Active Substance: FOLIC ACID
     Route: 048
  10. OMEPRAZOLE. [Concomitant]
     Active Substance: OMEPRAZOLE
     Dosage: 30 MINUTES TO ONE HOUR BEFORE MEAL
     Route: 048
  11. ADVAIR DISKUS [Concomitant]
     Active Substance: FLUTICASONE PROPIONATE\SALMETEROL XINAFOATE
     Dosage: 250 MICROGRAM- 50 MICROGRAM/DOSE?1 PUFF EVERY DAY IN MORNING AND EVENING
     Route: 055
  12. DEXAMETHASONE. [Concomitant]
     Active Substance: DEXAMETHASONE
     Dosage: 1 TABLET BEFORE CHEMO DAY AND 1 TABLET AFTER CHEMO DAY
     Route: 048
  13. HYOSCYAMINE SULPHATE [Concomitant]
     Dosage: 12 HOURS
     Route: 048
  14. MEGESTROL ACETATE. [Concomitant]
     Active Substance: MEGESTROL ACETATE
     Route: 048
  15. NYSTATIN. [Concomitant]
     Active Substance: NYSTATIN
     Dosage: 1000 UNIT/ML?4 TIMES EVERY DAY SWISH AND SPIT
     Route: 048
  16. CARBOPLATIN. [Concomitant]
     Active Substance: CARBOPLATIN
     Route: 065
     Dates: start: 201402

REACTIONS (1)
  - Haematemesis [Fatal]

NARRATIVE: CASE EVENT DATE: 20140218
